FAERS Safety Report 4643383-X (Version None)
Quarter: 2005Q2

REPORT INFORMATION
  Report Type: 
  Country: None (occurrence: None)
  Receive Date: 20050421
  Receipt Date: 20050408
  Transmission Date: 20051028
  Serious: Yes (Death, Life-Threatening, Hospitalization, Other)
  Sender: FDA-Public Use
  Company Number: KII-2005-0015991

PATIENT
  Age: 38 Year
  Sex: Female

DRUGS (8)
  1. HYDROMORPHONE HCL [Suspect]
     Indication: PAIN
     Dosage: SUBCUTANEOUS
     Route: 058
  2. ACETAMINOPHEN AND OXYCODONE HCL [Suspect]
     Dosage: ORAL
     Route: 048
  3. SSRI() [Suspect]
     Dosage: ORAL
  4. PROTON PUMP INHIBITOR() [Suspect]
     Dosage: ORAL
     Route: 048
  5. ANTISPASMODICS/ ANTICHOLINERGICS(S) [Suspect]
     Dosage: ORAL
     Route: 048
  6. NAPROXEN [Suspect]
     Dosage: ORAL
     Route: 048
  7. BENZODIAZEPINE DERIVATIVES() [Suspect]
     Dosage: ORAL
     Route: 048
  8. GASTROINTESTINAL PREPARATION() [Suspect]
     Dosage: ORAL
     Route: 048

REACTIONS (30)
  - ABDOMINAL PAIN UPPER [None]
  - ACIDOSIS [None]
  - ACTIVATED PARTIAL THROMBOPLASTIN TIME PROLONGED [None]
  - ALANINE AMINOTRANSFERASE INCREASED [None]
  - ANION GAP INCREASED [None]
  - ASPARTATE AMINOTRANSFERASE INCREASED [None]
  - BILIRUBIN CONJUGATED INCREASED [None]
  - BLOOD ALBUMIN DECREASED [None]
  - BLOOD AMYLASE INCREASED [None]
  - BLOOD BILIRUBIN INCREASED [None]
  - BLOOD CALCIUM DECREASED [None]
  - BLOOD CHLORIDE DECREASED [None]
  - BLOOD CREATINE INCREASED [None]
  - BLOOD GLUCOSE INCREASED [None]
  - BLOOD POTASSIUM DECREASED [None]
  - BLOOD PRESSURE DECREASED [None]
  - BLOOD SODIUM DECREASED [None]
  - CARDIAC ARREST [None]
  - COMA [None]
  - CONVULSION [None]
  - DYSARTHRIA [None]
  - HEART RATE INCREASED [None]
  - LIPASE INCREASED [None]
  - MYDRIASIS [None]
  - PLATELET COUNT DECREASED [None]
  - PROTEIN TOTAL DECREASED [None]
  - PROTHROMBIN TIME PROLONGED [None]
  - PUPILLARY REFLEX IMPAIRED [None]
  - RED BLOOD CELL COUNT DECREASED [None]
  - WHITE BLOOD CELL COUNT DECREASED [None]
